FAERS Safety Report 6950090-7 (Version None)
Quarter: 2010Q3

REPORT INFORMATION
  Report Type: 
  Country: None (occurrence: None)
  Receive Date: 20100828
  Receipt Date: 20100126
  Transmission Date: 20110219
  Serious: No
  Sender: FDA-Public Use
  Company Number: US-ABBOTT-10P-163-0623448-00

PATIENT
  Sex: Female
  Weight: 69.916 kg

DRUGS (10)
  1. NIASPAN [Suspect]
     Indication: CAROTID ARTERY OCCLUSION
     Dates: start: 20090601, end: 20091201
  2. NIASPAN [Suspect]
     Dates: start: 20091201
  3. COZAAR [Concomitant]
     Indication: HYPERTENSION
  4. PLAVIX [Concomitant]
     Indication: CHEST PAIN
  5. INDAPAMIDE [Concomitant]
     Indication: HYPERTENSION
  6. SINGULAIR [Concomitant]
     Indication: UPPER-AIRWAY COUGH SYNDROME
  7. SINGULAIR [Concomitant]
     Indication: DYSPNOEA
  8. SINGULAIR [Concomitant]
     Indication: PROPHYLAXIS
  9. CRESTOR [Concomitant]
     Indication: PRODUCT USED FOR UNKNOWN INDICATION
  10. AMLODIPINE [Concomitant]
     Indication: HYPERTENSION

REACTIONS (2)
  - CARDIAC FLUTTER [None]
  - DIARRHOEA [None]
